FAERS Safety Report 18032667 (Version 12)
Quarter: 2023Q1

REPORT INFORMATION
  Report Type: Report from Study
  Country: US (occurrence: US)
  Receive Date: 20200716
  Receipt Date: 20230324
  Transmission Date: 20230418
  Serious: Yes (Hospitalization, Other)
  Sender: FDA-Public Use
  Company Number: US-SHIRE-US202022688

PATIENT
  Sex: Female
  Weight: 78.91 kg

DRUGS (18)
  1. HUMAN IMMUNOGLOBULIN G [Suspect]
     Active Substance: HUMAN IMMUNOGLOBULIN G
     Indication: Immunodeficiency common variable
     Dosage: 10 GRAM, 1/WEEK
     Route: 058
     Dates: start: 20170309
  2. HUMAN IMMUNOGLOBULIN G [Suspect]
     Active Substance: HUMAN IMMUNOGLOBULIN G
     Dosage: 10 GRAM, 1/WEEK
     Route: 058
     Dates: start: 20170310
  3. HUMAN IMMUNOGLOBULIN G [Suspect]
     Active Substance: HUMAN IMMUNOGLOBULIN G
     Dosage: 10 GRAM, 1/WEEK
     Route: 058
     Dates: start: 20170405
  4. ACETAMINOPHEN [Concomitant]
     Active Substance: ACETAMINOPHEN
     Indication: Product used for unknown indication
     Dosage: UNK
     Route: 065
  5. DIPHENHYDRAMINE [Concomitant]
     Active Substance: DIPHENHYDRAMINE
     Indication: Product used for unknown indication
     Dosage: UNK
     Route: 065
  6. EPINEPHRINE [Concomitant]
     Active Substance: EPINEPHRINE
     Indication: Product used for unknown indication
     Dosage: UNK
     Route: 065
  7. LIDOCAINE [Concomitant]
     Active Substance: LIDOCAINE
     Indication: Product used for unknown indication
     Dosage: UNK
     Route: 065
  8. SYMBICORT [Concomitant]
     Active Substance: BUDESONIDE\FORMOTEROL FUMARATE DIHYDRATE
     Indication: Product used for unknown indication
     Dosage: UNK
     Route: 065
  9. NASACORT [Concomitant]
     Active Substance: TRIAMCINOLONE ACETONIDE
     Indication: Product used for unknown indication
     Dosage: UNK
     Route: 065
  10. SINGULAIR [Concomitant]
     Active Substance: MONTELUKAST SODIUM
     Indication: Product used for unknown indication
     Dosage: UNK
     Route: 065
  11. SPIRIVA [Concomitant]
     Active Substance: TIOTROPIUM BROMIDE MONOHYDRATE
     Indication: Product used for unknown indication
     Dosage: UNK
     Route: 065
  12. ZYRTEC [Concomitant]
     Active Substance: CETIRIZINE HYDROCHLORIDE
     Indication: Product used for unknown indication
     Dosage: UNK
     Route: 065
  13. XOPENEX [Concomitant]
     Active Substance: LEVALBUTEROL HYDROCHLORIDE
     Indication: Product used for unknown indication
     Route: 065
  14. BUDESONIDE [Concomitant]
     Active Substance: BUDESONIDE
  15. OMEPRAZOLE [Concomitant]
     Active Substance: OMEPRAZOLE
  16. LEVALBUTEROL [Concomitant]
     Active Substance: LEVALBUTEROL
  17. DIPHENHYDRAMINE HYDROCHLORIDE [Concomitant]
     Active Substance: DIPHENHYDRAMINE HYDROCHLORIDE
  18. LEVALBUTEROL HYDROCHLORIDE [Concomitant]
     Active Substance: LEVALBUTEROL HYDROCHLORIDE

REACTIONS (11)
  - Pneumonia [Unknown]
  - Bronchitis [Unknown]
  - Illness [Unknown]
  - Nasopharyngitis [Unknown]
  - Weight increased [Unknown]
  - Urinary tract infection [Unknown]
  - Sinusitis [Unknown]
  - Asthma [Unknown]
  - Infusion site pruritus [Unknown]
  - Urticaria [Unknown]
  - Infection [Unknown]
